FAERS Safety Report 9910006 (Version 3)
Quarter: 2015Q3

REPORT INFORMATION
  Report Type: Spontaneous
  Country: US (occurrence: US)
  Receive Date: 20140219
  Receipt Date: 20150811
  Transmission Date: 20151125
  Serious: No
  Sender: FDA-Public Use
  Company Number: US-GILEAD-2012-0051020

PATIENT
  Age: 34 Year
  Sex: Female

DRUGS (1)
  1. LETAIRIS [Suspect]
     Active Substance: AMBRISENTAN
     Indication: PULMONARY ARTERIAL HYPERTENSION
     Dosage: 10 UNK, UNK
     Route: 048
     Dates: start: 20110805

REACTIONS (5)
  - Upper-airway cough syndrome [Unknown]
  - Sinusitis [Unknown]
  - Alopecia [Unknown]
  - Nasal congestion [Unknown]
  - Rhinorrhoea [Unknown]
